FAERS Safety Report 5377874-3 (Version None)
Quarter: 2007Q2

REPORT INFORMATION
  Report Type: 
  Country: None (occurrence: None)
  Receive Date: 20070629
  Receipt Date: 20070618
  Transmission Date: 20071010
  Serious: Yes (Other)
  Sender: FDA-Public Use
  Company Number: 07H-163-0312756-00

PATIENT
  Age: 4 Year
  Sex: Male

DRUGS (4)
  1. MIDAZOLAM HYDROCHLORIDE [Suspect]
     Indication: SEDATIVE THERAPY
     Dosage: 0.5 MG/KG/HR
  2. FENTAYL INJECTION (FENTANYL CITRATE  INJECTION) ( (FENTANYL CITRATE) [Suspect]
     Indication: SEDATIVE THERAPY
     Dosage: 8 MCG/KG/HR
  3. MORPHINE SULFATE INJ [Suspect]
     Indication: SEDATIVE THERAPY
     Dosage: 0.8 MG/KG/HR
  4. CHLORAL HYDRATE (CHLORAL HYDRATE) [Suspect]
     Indication: SEDATIVE THERAPY

REACTIONS (13)
  - ABNORMAL BEHAVIOUR [None]
  - AGITATION [None]
  - AUTOMATISM [None]
  - DRUG WITHDRAWAL SYNDROME [None]
  - DYSKINESIA [None]
  - ENCEPHALOPATHY [None]
  - HALLUCINATION, VISUAL [None]
  - INCORRECT DOSE ADMINISTERED [None]
  - INSOMNIA [None]
  - MYOCLONUS [None]
  - NO THERAPEUTIC RESPONSE [None]
  - STATUS EPILEPTICUS [None]
  - STEREOTYPY [None]
